FAERS Safety Report 9018573 (Version 3)
Quarter: 2013Q4

REPORT INFORMATION
  Report Type: Spontaneous
  Country: US (occurrence: US)
  Receive Date: 20130118
  Receipt Date: 20131002
  Transmission Date: 20140711
  Serious: Yes (Other)
  Sender: FDA-Public Use
  Company Number: US-PFIZER INC-2013021827

PATIENT
  Age: 75 Year
  Sex: Male
  Weight: 118 kg

DRUGS (5)
  1. LYRICA [Suspect]
     Indication: FIBROMYALGIA
     Dosage: 100 MG, 3X/DAY
  2. ALLOPURINOL [Concomitant]
     Indication: GOUT
     Dosage: 200 MG, DAILY
  3. MONOPRIL [Concomitant]
     Indication: GOUT
     Dosage: 40 MG, 2X/DAY
  4. VITAMIN B12 [Concomitant]
     Indication: CROHN^S DISEASE
     Dosage: UNK, MONTHLY
  5. CIMZIA [Concomitant]
     Indication: CROHN^S DISEASE
     Dosage: UNK

REACTIONS (4)
  - Spinal decompression [Unknown]
  - Dysstasia [Unknown]
  - Gait disturbance [Unknown]
  - Malaise [Unknown]
